FAERS Safety Report 13642837 (Version 1)
Quarter: 2017Q2

REPORT INFORMATION
  Report Type: Spontaneous
  Country: SE (occurrence: SE)
  Receive Date: 20170612
  Receipt Date: 20170612
  Transmission Date: 20170830
  Serious: Yes (Other)
  Sender: FDA-Public Use
  Company Number: SE-TEVA-774576ISR

PATIENT
  Age: 53 Year
  Sex: Female

DRUGS (1)
  1. MIRTAZAPINE ACTAVIS [Suspect]
     Active Substance: MIRTAZAPINE
     Route: 065
     Dates: end: 20170331

REACTIONS (4)
  - Head injury [Unknown]
  - Fall [Unknown]
  - Syncope [Unknown]
  - Cerebral haemorrhage [Unknown]

NARRATIVE: CASE EVENT DATE: 20170331
